FAERS Safety Report 15236145 (Version 1)
Quarter: 2018Q3

REPORT INFORMATION
  Report Type: Spontaneous
  Country: US (occurrence: US)
  Receive Date: 20180709
  Receipt Date: 20180709
  Transmission Date: 20181010
  Serious: Yes (Hospitalization)
  Sender: FDA-Public Use
  Company Number: None

PATIENT
  Age: 20 Year
  Sex: Male

DRUGS (8)
  1. KALETRA [Concomitant]
     Active Substance: LOPINAVIR\RITONAVIR
  2. ALBUTEROL. [Concomitant]
     Active Substance: ALBUTEROL
  3. BACLOFEN. [Concomitant]
     Active Substance: BACLOFEN
  4. EFAVIRENZ. [Suspect]
     Active Substance: EFAVIRENZ
     Indication: HIV INFECTION
     Route: 048
     Dates: start: 20160420
  5. ZIAGEN [Concomitant]
     Active Substance: ABACAVIR SULFATE
  6. SUSTIVA [Concomitant]
     Active Substance: EFAVIRENZ
  7. PILMICORT [Concomitant]
  8. KEPPRA [Concomitant]
     Active Substance: LEVETIRACETAM

REACTIONS (1)
  - Pneumonia [None]

NARRATIVE: CASE EVENT DATE: 20180706
